FAERS Safety Report 7485629-9 (Version None)
Quarter: 2011Q2

REPORT INFORMATION
  Report Type: 
  Country: None (occurrence: None)
  Receive Date: 20110517
  Receipt Date: 20110504
  Transmission Date: 20111010
  Serious: Yes (Other)
  Sender: FDA-Public Use
  Company Number: US-US-EMD SERONO, INC.-7058276

PATIENT
  Age: 7 Year
  Sex: Female

DRUGS (2)
  1. SAIZEN [Suspect]
     Indication: PRODUCT USED FOR UNKNOWN INDICATION
     Dates: start: 20030501, end: 20081203
  2. SAIZEN [Suspect]
     Dates: end: 20080924

REACTIONS (1)
  - NEOPLASM PROGRESSION [None]
